APPROVED DRUG PRODUCT: METHYLDOPATE HYDROCHLORIDE
Active Ingredient: METHYLDOPATE HYDROCHLORIDE
Strength: 50MG/ML
Dosage Form/Route: INJECTABLE;INJECTION
Application: A070291 | Product #001
Applicant: BAXTER HEALTHCARE CORP ANESTHESIA AND CRITICAL CARE
Approved: Jul 1, 1986 | RLD: No | RS: No | Type: DISCN